FAERS Safety Report 25247742 (Version 1)
Quarter: 2025Q2

REPORT INFORMATION
  Report Type: Spontaneous
  Country: US (occurrence: US)
  Receive Date: 20250428
  Receipt Date: 20250428
  Transmission Date: 20250717
  Serious: Yes (Hospitalization)
  Sender: AMGEN
  Company Number: US-AMGEN-USASP2025080341

PATIENT
  Age: 25 Year
  Sex: Male

DRUGS (2)
  1. PREDNISONE [Suspect]
     Active Substance: PREDNISONE
     Indication: Bell^s palsy
     Route: 065
  2. VALACYCLOVIR [Concomitant]
     Active Substance: VALACYCLOVIR HYDROCHLORIDE
     Indication: Bell^s palsy

REACTIONS (5)
  - Neuroborreliosis [Recovered/Resolved]
  - Cellulitis orbital [Recovered/Resolved]
  - Lyme disease [Recovered/Resolved]
  - Optic perineuritis [Recovered/Resolved]
  - Off label use [Unknown]
